FAERS Safety Report 7427901-4 (Version None)
Quarter: 2011Q2

REPORT INFORMATION
  Report Type: 
  Country: None (occurrence: None)
  Receive Date: 20110413
  Receipt Date: 20110404
  Transmission Date: 20111010
  Serious: Yes (Death)
  Sender: FDA-Public Use
  Company Number: 2011SP015265

PATIENT
  Age: 33 Year
  Sex: Female

DRUGS (4)
  1. DEXAMETHASONE [Concomitant]
  2. TRETINOIN [Suspect]
     Indication: ACUTE PROMYELOCYTIC LEUKAEMIA
     Dosage: 45 MG/M2; QD; PO
     Route: 048
  3. FLUCONAZOLE [Suspect]
     Indication: ANTIFUNGAL PROPHYLAXIS
  4. POSACONAZOLE [Suspect]
     Indication: ANTIFUNGAL PROPHYLAXIS

REACTIONS (15)
  - GASTROINTESTINAL TOXICITY [None]
  - ABDOMINAL DISTENSION [None]
  - ENTEROBACTER TEST POSITIVE [None]
  - ABDOMINAL PAIN [None]
  - TOXICITY TO VARIOUS AGENTS [None]
  - SEPTIC SHOCK [None]
  - DRUG INTERACTION [None]
  - METABOLIC DISORDER [None]
  - HEPATOTOXICITY [None]
  - DYSPNOEA [None]
  - DIARRHOEA [None]
  - METABOLIC ACIDOSIS [None]
  - BLOOD BILIRUBIN INCREASED [None]
  - BILIRUBIN CONJUGATED INCREASED [None]
  - MULTI-ORGAN FAILURE [None]
